FAERS Safety Report 9278028 (Version 2)
Quarter: 2013Q2

REPORT INFORMATION
  Report Type: Spontaneous
  Country: FR (occurrence: FR)
  Receive Date: 20130508
  Receipt Date: 20130516
  Transmission Date: 20140414
  Serious: Yes (Hospitalization, Other)
  Sender: FDA-Public Use
  Company Number: FR-PFIZER INC-2013139835

PATIENT
  Age: 48 Year
  Sex: Female

DRUGS (2)
  1. MORPHINE SULFATE [Suspect]
     Indication: DRUG REHABILITATION
     Dosage: 600 MG, DAILY
     Route: 042
     Dates: start: 1997
  2. HYDROCORTISONE [Concomitant]
     Indication: ADRENAL INSUFFICIENCY
     Dosage: UNK

REACTIONS (8)
  - Incorrect route of drug administration [Unknown]
  - Skin ulcer [Unknown]
  - Injection site abscess [Recovering/Resolving]
  - Drug dependence [Unknown]
  - Cyanosis [Unknown]
  - Off label use [Unknown]
  - Oedema peripheral [Unknown]
  - Telangiectasia [Not Recovered/Not Resolved]
